FAERS Safety Report 25924988 (Version 1)
Quarter: 2025Q4

REPORT INFORMATION
  Report Type: Spontaneous
  Country: US (occurrence: US)
  Receive Date: 20251015
  Receipt Date: 20251015
  Transmission Date: 20260117
  Serious: Yes (Other)
  Sender: BAYER HEALTHCARE PHARMACEUTICALS INC.
  Company Number: US-BAYER-2025A134454

PATIENT
  Age: 55 Year
  Sex: Female

DRUGS (2)
  1. JIVI [Suspect]
     Active Substance: DAMOCTOCOG ALFA PEGOL
     Indication: Factor VIII deficiency
     Dosage: JIVI 2000 IU: INFUSE~ INFUSE ~ 2800 UNITS (+/-10%) IVPUSH EVERY 24-48 HOURS PRN
     Route: 042
  2. JIVI [Suspect]
     Active Substance: DAMOCTOCOG ALFA PEGOL
     Indication: Haemorrhage
     Dosage: JIVI 500 IU: INFUSE~ INFUSE ~ 2800 UNITS (+/-10%) IVPUSH EVERY 24-48 HOURS PRN
     Route: 042

REACTIONS (1)
  - Vaginal haemorrhage [None]
